FAERS Safety Report 6081656-7 (Version None)
Quarter: 2009Q1

REPORT INFORMATION
  Report Type: 
  Country: None (occurrence: None)
  Receive Date: 20090218
  Receipt Date: 20090216
  Transmission Date: 20090719
  Serious: Yes (Hospitalization)
  Sender: FDA-Public Use
  Company Number: DE-WYE-G03123309

PATIENT
  Sex: Male
  Weight: 100 kg

DRUGS (7)
  1. TREVILOR RETARD [Suspect]
     Dosage: 10 CAPSULES (OVERDOSE AMOUNT 750 MG)
     Route: 048
     Dates: start: 20090216, end: 20090216
  2. METOPROLOL SUCCINATE [Suspect]
     Dosage: 3 - 4 TABLETS (OVERDOSE AMOUNT 142.5 - 190 MG)
     Route: 048
     Dates: start: 20090216, end: 20090216
  3. TETRAZEPAM [Suspect]
     Dosage: 4 - 5 TABLETS (OVERDOSE AMOUNT UNKNOWN)
     Route: 048
     Dates: start: 20090216, end: 20090216
  4. IBUPROFEN TABLETS [Suspect]
     Dosage: 1 TABLET (OVERDOSE AMOUNT UNKNOWN)
     Route: 048
     Dates: start: 20090216, end: 20090216
  5. OPIPRAMOL [Suspect]
     Dosage: 3 - 4 TABLETS (OVERDOSE AMOUNT 300 - 400 MG)
     Route: 048
     Dates: start: 20090216, end: 20090216
  6. AMITRIPTYLINE [Suspect]
     Dosage: 2 TABLETS (OVERDOSE AMOUNT 20 MG)
     Route: 048
     Dates: start: 20090216, end: 20090216
  7. FERROUS SULFATE TAB [Suspect]
     Dosage: 5 DRAGEES (OVERDOSE AMOUNT 1250 MG)
     Route: 048
     Dates: start: 20090216, end: 20090216

REACTIONS (3)
  - FATIGUE [None]
  - INTENTIONAL OVERDOSE [None]
  - SUICIDE ATTEMPT [None]
